FAERS Safety Report 8154474 (Version 3)
Quarter: 2013Q4

REPORT INFORMATION
  Report Type: Report from Study
  Country: FR (occurrence: FR)
  Receive Date: 20110923
  Receipt Date: 20131127
  Transmission Date: 20140711
  Serious: Yes (Disabling, Other)
  Sender: FDA-Public Use
  Company Number: PHHY2011FR82906

PATIENT
  Age: 81 Year
  Sex: Female
  Weight: 70 kg

DRUGS (3)
  1. ACLASTA/ZOLEDRONATE [Suspect]
     Dosage: 5 MG, UNK
     Route: 042
     Dates: start: 20110530
  2. PARACETAMOL [Concomitant]
     Dosage: 4 G,DAILY
     Dates: start: 20110529, end: 201106
  3. LIPANTHYL [Concomitant]
     Indication: HYPERCHOLESTEROLAEMIA
     Dosage: UNK UKN, UNK

REACTIONS (9)
  - Headache [Recovered/Resolved]
  - Asthenia [Recovered/Resolved]
  - Systemic inflammatory response syndrome [Recovered/Resolved]
  - Malaise [Recovered/Resolved]
  - Pyrexia [Recovered/Resolved]
  - C-reactive protein increased [Recovered/Resolved]
  - Anaemia [Recovered/Resolved]
  - Oedema peripheral [Recovered/Resolved]
  - Myalgia [Unknown]
